FAERS Safety Report 8772406 (Version 3)
Quarter: 2012Q4

REPORT INFORMATION
  Report Type: Report from Study
  Country: US (occurrence: US)
  Receive Date: 20120906
  Receipt Date: 20120921
  Transmission Date: 20130627
  Serious: Yes (Other)
  Sender: FDA-Public Use
  Company Number: US-ABBOTT-12P-163-0973666-00

PATIENT
  Sex: Male

DRUGS (1)
  1. HUMIRA [Suspect]
     Indication: CROHN^S DISEASE
     Route: 058
     Dates: start: 201012

REACTIONS (6)
  - Gastrointestinal disorder [Unknown]
  - Gastric bypass [Unknown]
  - Biliary tract operation [Unknown]
  - Surgery [Unknown]
  - Surgery [Unknown]
  - Upper respiratory tract infection [Unknown]
